FAERS Safety Report 15181234 (Version 2)
Quarter: 2018Q3

REPORT INFORMATION
  Report Type: Spontaneous
  Country: US (occurrence: US)
  Receive Date: 20180723
  Receipt Date: 20180815
  Transmission Date: 20181010
  Serious: No
  Sender: FDA-Public Use
  Company Number: US-SA-2018SA194853

PATIENT
  Age: 47 Year
  Sex: Female

DRUGS (1)
  1. KEVZARA [Suspect]
     Active Substance: SARILUMAB
     Dosage: 200 MG, QOW
     Route: 058
     Dates: start: 20180621

REACTIONS (6)
  - Photosensitivity reaction [Unknown]
  - Injection site reaction [Unknown]
  - Diarrhoea [Unknown]
  - Mouth ulceration [Unknown]
  - Fatigue [Unknown]
  - Oral herpes [Unknown]
